FAERS Safety Report 25402310 (Version 1)
Quarter: 2025Q2

REPORT INFORMATION
  Report Type: Spontaneous
  Country: CN (occurrence: CN)
  Receive Date: 20250605
  Receipt Date: 20250605
  Transmission Date: 20250717
  Serious: Yes (Hospitalization)
  Sender: MERCK SHARP & DOHME LLC
  Company Number: CN-009507513-2291665

PATIENT
  Age: 62 Year
  Sex: Female
  Weight: 40 kg

DRUGS (4)
  1. KEYTRUDA [Suspect]
     Active Substance: PEMBROLIZUMAB
     Indication: Gastric cancer
     Dosage: 200 MG, EVERY 21 DAYS
     Route: 041
     Dates: start: 20240808, end: 20240808
  2. OXALIPLATIN [Suspect]
     Active Substance: OXALIPLATIN
     Indication: Gastric cancer
     Dosage: 180 MG, EVERY 21 DAYS
     Route: 041
     Dates: start: 20240808, end: 20240808
  3. TRASTUZUMAB [Suspect]
     Active Substance: TRASTUZUMAB
     Indication: Gastric cancer
     Dosage: (6 MG/KG) 260 MG IV INFUSION ON DAY 1 , EVERY 21 DAYS
     Route: 041
     Dates: start: 20240808, end: 20240808
  4. CAPECITABINE [Suspect]
     Active Substance: CAPECITABINE
     Indication: Gastric cancer
     Route: 048
     Dates: start: 20240808, end: 20240808

REACTIONS (1)
  - Myelosuppression [Recovering/Resolving]

NARRATIVE: CASE EVENT DATE: 20240812
